FAERS Safety Report 7575156-2 (Version None)
Quarter: 2011Q2

REPORT INFORMATION
  Report Type: 
  Country: None (occurrence: None)
  Receive Date: 20110627
  Receipt Date: 20101005
  Transmission Date: 20111010
  Serious: No
  Sender: FDA-Public Use
  Company Number: US-BAYER-201038791NA

PATIENT
  Sex: Female

DRUGS (2)
  1. MIRENA [Suspect]
     Dosage: 20 ?G/D, CONT
     Route: 015
     Dates: start: 20100101
  2. TETRACYCLINE [Concomitant]
     Indication: ACNE
     Dosage: UNK

REACTIONS (1)
  - MEDICAL DEVICE COMPLICATION [None]
